FAERS Safety Report 8364735-0 (Version None)
Quarter: 2012Q2

REPORT INFORMATION
  Report Type: 
  Country: None (occurrence: None)
  Receive Date: 20120516
  Receipt Date: 20120512
  Transmission Date: 20120825
  Serious: Yes (Other)
  Sender: FDA-Public Use
  Company Number: JP-EISAI INC-E2020-10784-SPO-JP

PATIENT
  Age: 75 Year
  Sex: Female

DRUGS (7)
  1. ASPIRIN [Concomitant]
     Route: 048
  2. ONEALFA [Concomitant]
     Route: 048
  3. AMLODIPINE BESYLATE [Concomitant]
     Route: 048
  4. ARICEPT [Suspect]
     Indication: DEMENTIA ALZHEIMER'S TYPE
     Route: 048
     Dates: start: 20120421, end: 20120422
  5. MUCOSTA [Concomitant]
     Route: 048
  6. ADONA [Concomitant]
     Route: 048
  7. CELEBREX [Concomitant]
     Route: 048

REACTIONS (1)
  - ANAPHYLACTOID REACTION [None]
